FAERS Safety Report 16474512 (Version 1)
Quarter: 2019Q3

REPORT INFORMATION
  Report Type: Spontaneous
  Country: US (occurrence: US)
  Receive Date: 20190624
  Receipt Date: 20190624
  Transmission Date: 20191004
  Serious: Yes (Hospitalization)
  Sender: FDA-Public Use
  Company Number: None

PATIENT
  Age: 60 Year
  Sex: Male

DRUGS (21)
  1. TACROLIMUS 1MG CAP [Suspect]
     Active Substance: TACROLIMUS
     Indication: LIVER TRANSPLANT
     Dosage: ?          OTHER FREQUENCY:2C QAM AND 2C QPM;?
     Route: 048
     Dates: start: 20151204
  2. MYCOPHENOLIC 180MG DR TABLET [Suspect]
     Active Substance: MYCOPHENOLIC ACID
     Indication: LIVER TRANSPLANT
     Route: 048
     Dates: start: 20151204
  3. FOSAMAX [Concomitant]
     Active Substance: ALENDRONATE SODIUM
  4. METOPROLOL. [Concomitant]
     Active Substance: METOPROLOL
  5. AMLODIPINE [Concomitant]
     Active Substance: AMLODIPINE BESYLATE
  6. ASPIRIN. [Concomitant]
     Active Substance: ASPIRIN
  7. KAYEXALATE POWER [Concomitant]
  8. MYCOPHENOLIC 180MG DR TABLET [Suspect]
     Active Substance: MYCOPHENOLIC ACID
     Indication: RENAL TRANSPLANT
     Route: 048
     Dates: start: 20151204
  9. PREDNISONE. [Concomitant]
     Active Substance: PREDNISONE
  10. QUETIAPINE. [Concomitant]
     Active Substance: QUETIAPINE
  11. SODIUM BICAR [Concomitant]
  12. TIMOLOL MAL [Concomitant]
  13. OMEPRAZOLE. [Concomitant]
     Active Substance: OMEPRAZOLE
  14. TACROLIMUS 1MG CAP [Suspect]
     Active Substance: TACROLIMUS
     Indication: RENAL TRANSPLANT
     Dosage: ?          OTHER FREQUENCY:2C QAM AND 2C QPM;?
     Route: 048
     Dates: start: 20151204
  15. ATORVASTATIN [Concomitant]
     Active Substance: ATORVASTATIN
  16. CYCLOSPORINE. [Concomitant]
     Active Substance: CYCLOSPORINE
  17. CALCITROL [CALCITRIOL] [Concomitant]
     Active Substance: CALCITRIOL
  18. TAMSULOSIN [Concomitant]
     Active Substance: TAMSULOSIN
  19. VITAMIN D [Concomitant]
     Active Substance: VITAMIN D NOS
  20. MYCOPHENOLIC [Concomitant]
     Active Substance: MYCOPHENOLIC ACID
  21. TYLENOL [Concomitant]
     Active Substance: ACETAMINOPHEN

REACTIONS (1)
  - Cerebrovascular accident [None]

NARRATIVE: CASE EVENT DATE: 19990611
